FAERS Safety Report 9196443 (Version 2)
Quarter: 2013Q2

REPORT INFORMATION
  Report Type: Spontaneous
  Country: IT (occurrence: IT)
  Receive Date: 20130328
  Receipt Date: 20130422
  Transmission Date: 20140414
  Serious: Yes (Hospitalization)
  Sender: FDA-Public Use
  Company Number: IT-BRISTOL-MYERS SQUIBB COMPANY-17466855

PATIENT
  Age: 77 Year
  Sex: Female

DRUGS (3)
  1. COUMADIN TABS 5 MG [Suspect]
     Indication: MITRAL VALVE REPLACEMENT
     Route: 048
     Dates: start: 20000101, end: 20130301
  2. LASITONE [Concomitant]
  3. LANOXIN [Concomitant]

REACTIONS (3)
  - Subdural haemorrhage [Recovering/Resolving]
  - Hypocoagulable state [Recovering/Resolving]
  - Fall [Unknown]
